FAERS Safety Report 5080018-9 (Version None)
Quarter: 2006Q3

REPORT INFORMATION
  Report Type: 
  Country: None (occurrence: None)
  Receive Date: 20060810
  Receipt Date: 20060724
  Transmission Date: 20061208
  Serious: Yes (Hospitalization)
  Sender: FDA-Public Use
  Company Number: DE-2006-018003

PATIENT
  Age: 65 Year
  Sex: Male
  Weight: 93 kg

DRUGS (7)
  1. CAMPATH [Suspect]
     Indication: CHRONIC LYMPHOCYTIC LEUKAEMIA
     Dosage: 30 MG, INTRAVENOUS
     Route: 042
     Dates: start: 20050926, end: 20060223
  2. FLUDARABINE PHOSPHATE [Suspect]
     Indication: CHRONIC LYMPHOCYTIC LEUKAEMIA
     Dosage: 63 MG, INTRAVENOUS
     Route: 042
     Dates: start: 20051004, end: 20060223
  3. COTRIM DS [Concomitant]
  4. FAMVIR /UNK/(FAMCICLOVIR) [Concomitant]
  5. NORMOC (BROMAZEPAM) [Concomitant]
  6. PANTOZOL (PANTOPRAZOLE SODIUM) [Concomitant]
  7. TRAMADOL HCL [Concomitant]

REACTIONS (5)
  - APHTHOUS STOMATITIS [None]
  - DIFFUSE LARGE B-CELL LYMPHOMA [None]
  - EAR PAIN [None]
  - MIDDLE EAR DISORDER [None]
  - TONGUE NEOPLASM [None]
